FAERS Safety Report 6377576-0 (Version None)
Quarter: 2009Q3

REPORT INFORMATION
  Report Type: 
  Country: None (occurrence: None)
  Receive Date: 20090923
  Receipt Date: 20090923
  Transmission Date: 20100115
  Serious: Yes (Other)
  Sender: FDA-Public Use
  Company Number: None

PATIENT
  Age: 69 Year
  Sex: Male
  Weight: 70.7 kg

DRUGS (6)
  1. LIDOCAINE [Suspect]
     Indication: VENTRICULAR TACHYCARDIA
     Dosage: 2MG/MIN
     Dates: start: 20090725
  2. NAC DIAGNOSTIC REAGENT [Concomitant]
  3. CEFEPIME [Concomitant]
  4. HYDRALAZINE [Concomitant]
  5. FUROSEMIDE [Concomitant]
  6. APAP TAB [Concomitant]

REACTIONS (3)
  - ANALGESIC DRUG LEVEL ABOVE THERAPEUTIC [None]
  - CONFUSIONAL STATE [None]
  - DISORIENTATION [None]
